FAERS Safety Report 7433122-1 (Version None)
Quarter: 2011Q2

REPORT INFORMATION
  Report Type: 
  Country: None (occurrence: None)
  Receive Date: 20110415
  Receipt Date: 20110404
  Transmission Date: 20111010
  Serious: Yes (Hospitalization)
  Sender: FDA-Public Use
  Company Number: 030121

PATIENT
  Sex: Male

DRUGS (1)
  1. CIMZIA [Suspect]
     Indication: CROHN'S DISEASE
     Dosage: DOSE, SUBCUTANEOUS
     Route: 058
     Dates: start: 20101202

REACTIONS (2)
  - SCHIZOPHRENIA [None]
  - CONDITION AGGRAVATED [None]
